FAERS Safety Report 5621652-4 (Version None)
Quarter: 2008Q1

REPORT INFORMATION
  Report Type: 
  Country: None (occurrence: None)
  Receive Date: 20080131
  Receipt Date: 20080125
  Transmission Date: 20080703
  Serious: Yes (Death)
  Sender: FDA-Public Use
  Company Number: 2008002332

PATIENT
  Age: 7 Month
  Sex: Male

DRUGS (1)
  1. BENADRYL [Suspect]
     Dosage: ORAL
     Route: 048
     Dates: start: 20071001, end: 20071001

REACTIONS (1)
  - DEATH [None]
